FAERS Safety Report 7253204 (Version 2)
Quarter: 2014Q1

REPORT INFORMATION
  Report Type: Spontaneous
  Country: US (occurrence: None)
  Receive Date: 20100113
  Receipt Date: 20140124
  Transmission Date: 20141002
  Serious: Yes (Hospitalization, Other)
  Sender: FDA-Public Use
  Company Number: 2010S1000005

PATIENT
  Age: 82 Year
  Sex: Female

DRUGS (6)
  1. FLEET PHOSPHO-SODA [Suspect]
     Indication: PRODUCT USED FOR UNKNOWN INDICATION
     Dosage: 90 ML, 2 IN 24 HOURS, ORAL
     Route: 048
     Dates: start: 20070401, end: 20070402
  2. COLYTE [Suspect]
     Indication: COLONOSCOPY
     Route: 048
     Dates: start: 20070402, end: 20070402
  3. NORVASC (AMLODIPINE BESILATE) [Concomitant]
  4. CLONIDINE (CLONIDINE) [Concomitant]
  5. HYDROCHLOROTHIAZIDE (HYDROCHLOROTHIAZIDE) [Concomitant]
  6. COZAAR (LOSARTAN POTASSIUM) (50 MILLIGRAM, TABLETS) (LOSARTAN POTASSIUM) [Concomitant]

REACTIONS (10)
  - Injury [None]
  - Nausea [None]
  - Eructation [None]
  - Abdominal distension [None]
  - Dysgeusia [None]
  - Fatigue [None]
  - Feeling abnormal [None]
  - Renal failure acute [None]
  - Dehydration [None]
  - Renal failure chronic [None]
